FAERS Safety Report 7860222-4 (Version None)
Quarter: 2011Q4

REPORT INFORMATION
  Report Type: 
  Country: None (occurrence: None)
  Receive Date: 20111027
  Receipt Date: 20111012
  Transmission Date: 20120403
  Serious: Yes (Other)
  Sender: FDA-Public Use
  Company Number: US-ROCHE-1005340

PATIENT

DRUGS (2)
  1. AVASTIN [Suspect]
     Indication: DETACHMENT OF RETINAL PIGMENT EPITHELIUM
     Route: 050
  2. TRIAMCINOLONE ACETONIDE [Suspect]
     Indication: DETACHMENT OF RETINAL PIGMENT EPITHELIUM

REACTIONS (3)
  - VITREOUS HAEMORRHAGE [None]
  - DETACHMENT OF RETINAL PIGMENT EPITHELIUM [None]
  - RETINAL PIGMENT EPITHELIAL TEAR [None]
